FAERS Safety Report 4717009-0 (Version None)
Quarter: 2005Q3

REPORT INFORMATION
  Report Type: 
  Country: None (occurrence: None)
  Receive Date: 20050715
  Receipt Date: 20050705
  Transmission Date: 20060218
  Serious: Yes (Hospitalization)
  Sender: FDA-Public Use
  Company Number: HQWYE035307JUL05

PATIENT
  Age: 11 Year

DRUGS (1)
  1. ADVIL [Suspect]
     Indication: VIRAL INFECTION

REACTIONS (2)
  - EYE SWELLING [None]
  - URTICARIA [None]
